FAERS Safety Report 24203242 (Version 1)
Quarter: 2024Q3

REPORT INFORMATION
  Report Type: Spontaneous
  Country: US (occurrence: US)
  Receive Date: 20240813
  Receipt Date: 20240813
  Transmission Date: 20241017
  Serious: No
  Sender: Tarsus Pharmaceuticals
  Company Number: US-TARSUS PHARMACEUTICALS-TSP-US-2024-000279

PATIENT
  Sex: Female

DRUGS (2)
  1. XDEMVY [Suspect]
     Active Substance: LOTILANER
     Indication: Product used for unknown indication
     Dosage: 2 DROP, BID (BOTH EYE)
     Route: 047
  2. XDEMVY [Suspect]
     Active Substance: LOTILANER
     Dosage: 1 DROP, BID (BOTH EYE)
     Route: 047

REACTIONS (1)
  - Incorrect dose administered [Unknown]
